FAERS Safety Report 4497646-1 (Version None)
Quarter: 2004Q4

REPORT INFORMATION
  Report Type: 
  Country: None (occurrence: None)
  Receive Date: 20041103
  Receipt Date: 20041019
  Transmission Date: 20050328
  Serious: Yes (Death)
  Sender: FDA-Public Use
  Company Number: US-JNJFOC-20041005807

PATIENT
  Age: 42 Year
  Sex: Male

DRUGS (3)
  1. FENTANYL [Suspect]
     Indication: DRUG USE FOR UNKNOWN INDICATION
     Route: 050
  2. PAROXETINE [Concomitant]
  3. PENTOXIFYLLINE [Concomitant]

REACTIONS (4)
  - ACCIDENTAL DEATH [None]
  - DRUG ABUSER [None]
  - DRUG SCREEN POSITIVE [None]
  - MEDICATION ERROR [None]
